FAERS Safety Report 8786560 (Version 1)
Quarter: 2012Q4

REPORT INFORMATION
  Report Type: 
  Country: VE (occurrence: VE)
  Receive Date: 20120914
  Receipt Date: 20120914
  Transmission Date: 20130627
  Serious: Yes (Hospitalization)
  Sender: FDA-Public Use
  Company Number: PHHY2012VE079755

PATIENT
  Age: 78 Year
  Sex: Male

DRUGS (2)
  1. LEPONEX [Suspect]
     Route: 048
     Dates: start: 20090810
  2. LEPONEX [Suspect]
     Dosage: 25 mg, UNK
     Route: 048
     Dates: start: 20120905

REACTIONS (1)
  - Plasma cell myeloma [Recovering/Resolving]
